FAERS Safety Report 5450705-9 (Version None)
Quarter: 2007Q3

REPORT INFORMATION
  Report Type: 
  Country: None (occurrence: None)
  Receive Date: 20070910
  Receipt Date: 20070801
  Transmission Date: 20080115
  Serious: Yes (Life-Threatening, Other)
  Sender: FDA-Public Use
  Company Number: 2007US-09583

PATIENT
  Age: 14 Year
  Sex: Male

DRUGS (2)
  1. ISOTRETINOIN [Suspect]
     Indication: ACNE
     Dosage: 40 MG, QOD ALTERNATE EVERY DAY, ORAL; 80 MG, QOD ALTERNATE EVERY DAY, ORAL
     Route: 048
     Dates: start: 20070110, end: 20070515
  2. ISOTRETINOIN [Suspect]
     Indication: ACNE
     Dosage: 40 MG, QOD ALTERNATE EVERY DAY, ORAL; 80 MG, QOD ALTERNATE EVERY DAY, ORAL
     Route: 048
     Dates: start: 20070110, end: 20070515

REACTIONS (7)
  - ANHEDONIA [None]
  - ANOREXIA [None]
  - AUTISM [None]
  - DEPRESSION [None]
  - IRRITABILITY [None]
  - SLEEP DISORDER [None]
  - SUICIDAL IDEATION [None]
